FAERS Safety Report 4283351-3 (Version None)
Quarter: 2004Q1

REPORT INFORMATION
  Report Type: 
  Country: None (occurrence: None)
  Receive Date: 20040129
  Receipt Date: 20040116
  Transmission Date: 20041129
  Serious: Yes (Other)
  Sender: FDA-Public Use
  Company Number: 2004002315

PATIENT
  Age: 24 Year
  Sex: Male

DRUGS (10)
  1. ZELDOX (CAPSULES) (ZIPRASIDONE) [Suspect]
     Indication: SCHIZOPHRENIA
  2. FLUNITRAZEPAM (FLUNITRAZEPAM) [Concomitant]
  3. MIRTAZAPINE [Concomitant]
  4. LEVOMEPROMAZINE (LEVOMEPROMAZINE) [Concomitant]
  5. HYDROXYZINE HCL [Concomitant]
  6. ZALEPLON (ZALEPLON) [Concomitant]
  7. DIAZEPAM [Concomitant]
  8. NITRAZEPAM [Concomitant]
  9. RANITIDINE HYDROCHLORIDE [Concomitant]
  10. DICLOFENAC SODIUM [Concomitant]

REACTIONS (8)
  - AGGRESSION [None]
  - DELUSION [None]
  - DRUG INEFFECTIVE [None]
  - FEELING ABNORMAL [None]
  - HALLUCINATION, AUDITORY [None]
  - INSOMNIA [None]
  - MURDER [None]
  - TREATMENT NONCOMPLIANCE [None]
